FAERS Safety Report 14692972 (Version 3)
Quarter: 2025Q2

REPORT INFORMATION
  Report Type: Spontaneous
  Country: DE (occurrence: DE)
  Receive Date: 20180329
  Receipt Date: 20250630
  Transmission Date: 20250717
  Serious: Yes (Death, Life-Threatening, Other)
  Sender: NOVARTIS
  Company Number: PHHY2018DE050121

PATIENT
  Age: 54 Year
  Sex: Female
  Weight: 74 kg

DRUGS (6)
  1. FLUDARABINE [Suspect]
     Active Substance: FLUDARABINE PHOSPHATE
     Indication: Allogenic stem cell transplantation
     Dosage: 12 G, TID  (12 G, TID (3X12G) )
     Route: 065
  2. ACETAMINOPHEN [Suspect]
     Active Substance: ACETAMINOPHEN
     Indication: Pyrexia
     Route: 048
     Dates: start: 20171205
  3. CYCLOSPORINE [Suspect]
     Active Substance: CYCLOSPORINE
     Indication: Immunosuppression
     Route: 042
     Dates: start: 20171204
  4. CIPROFLOXACIN [Suspect]
     Active Substance: CIPROFLOXACIN
     Indication: Antibiotic therapy
     Route: 048
     Dates: start: 20171130, end: 20171208
  5. TREOSULFAN [Suspect]
     Active Substance: TREOSULFAN
     Indication: Allogenic stem cell transplantation
     Dosage: 12 G, TID
     Route: 065
  6. LAPINE T-LYMPHOCYTE IMMUNE GLOBULIN [Suspect]
     Active Substance: LAPINE T-LYMPHOCYTE IMMUNE GLOBULIN
     Indication: Immunosuppression
     Route: 042

REACTIONS (2)
  - Graft versus host disease [Fatal]
  - Skin toxicity [Fatal]

NARRATIVE: CASE EVENT DATE: 20171205
